FAERS Safety Report 20518884 (Version 2)
Quarter: 2023Q1

REPORT INFORMATION
  Report Type: Spontaneous
  Country: US (occurrence: US)
  Receive Date: 20220225
  Receipt Date: 20230206
  Transmission Date: 20230417
  Serious: Yes (Other)
  Sender: FDA-Public Use
  Company Number: US-PFIZER INC-202200270461

PATIENT
  Age: 48 Year
  Sex: Female

DRUGS (1)
  1. ELELYSO [Suspect]
     Active Substance: TALIGLUCERASE ALFA
     Dosage: UNK (DOSE/RATE: 5400 UNITS INTRAVENOUSLY OVER 2 HOURS)
     Route: 042

REACTIONS (15)
  - Cytopenia [Recovering/Resolving]
  - Drug ineffective [Unknown]
  - Pain in extremity [Unknown]
  - Arthralgia [Unknown]
  - Limb deformity [Unknown]
  - Tobacco user [Unknown]
  - Depression [Unknown]
  - Weight decreased [Unknown]
  - Flushing [Unknown]
  - Defaecation disorder [Unknown]
  - Abdominal distension [Unknown]
  - Flank pain [Unknown]
  - Muscle swelling [Unknown]
  - Bone pain [Unknown]
  - Fatigue [Unknown]

NARRATIVE: CASE EVENT DATE: 20220201
